FAERS Safety Report 21915577 (Version 1)
Quarter: 2023Q1

REPORT INFORMATION
  Report Type: Spontaneous
  Country: US (occurrence: None)
  Receive Date: 20230125
  Receipt Date: 20230125
  Transmission Date: 20230417
  Serious: No
  Sender: FDA-Public Use
  Company Number: None

PATIENT
  Age: 62 Year
  Sex: Female

DRUGS (1)
  1. BUROSUMAB [Suspect]
     Active Substance: BUROSUMAB
     Indication: Hereditary hypophosphataemic rickets
     Dosage: OTHER FREQUENCY : Q28 DAYS;?
     Route: 058
     Dates: start: 20220803

REACTIONS (4)
  - Joint stiffness [None]
  - Arthralgia [None]
  - Hyperaesthesia [None]
  - Pruritus [None]
